FAERS Safety Report 7672609-3 (Version None)
Quarter: 2011Q3

REPORT INFORMATION
  Report Type: 
  Country: None (occurrence: None)
  Receive Date: 20110804
  Receipt Date: 20110720
  Transmission Date: 20111222
  Serious: Yes (Death)
  Sender: FDA-Public Use
  Company Number: 2011BN000068

PATIENT

DRUGS (3)
  1. MELPHALAN HYDROCHLORIDE [Suspect]
     Indication: MALIGNANT SOFT TISSUE NEOPLASM
  2. DACTINOMYCIN [Suspect]
     Indication: MALIGNANT SOFT TISSUE NEOPLASM
  3. HEPARIN [Concomitant]

REACTIONS (1)
  - DISEASE PROGRESSION [None]
